FAERS Safety Report 5135993-0 (Version None)
Quarter: 2006Q4

REPORT INFORMATION
  Report Type: 
  Country: None (occurrence: None)
  Receive Date: 20061020
  Receipt Date: 20061011
  Transmission Date: 20070319
  Serious: No
  Sender: FDA-Public Use
  Company Number: 2006125055

PATIENT
  Age: 60 Year
  Sex: Female

DRUGS (1)
  1. GENOTROPIN [Suspect]
     Indication: HYPOPITUITARISM
     Dosage: 0.2 MG (1 IN 1 D), SUBCUTANEOUS
     Route: 058
     Dates: start: 20040101, end: 20060718

REACTIONS (2)
  - BASAL CELL CARCINOMA [None]
  - POSTOPERATIVE WOUND INFECTION [None]
